FAERS Safety Report 18953114 (Version 1)
Quarter: 2021Q1

REPORT INFORMATION
  Report Type: Spontaneous
  Country: US (occurrence: US)
  Receive Date: 20210301
  Receipt Date: 20210301
  Transmission Date: 20210420
  Serious: Yes (Other)
  Sender: FDA-Public Use
  Company Number: US-SA-2021SA062965

PATIENT
  Sex: Female

DRUGS (1)
  1. KEVZARA [Suspect]
     Active Substance: SARILUMAB
     Dosage: UNK

REACTIONS (4)
  - Gait disturbance [Unknown]
  - Unintentional use for unapproved indication [Unknown]
  - Frustration tolerance decreased [Unknown]
  - Suicidal ideation [Unknown]
